FAERS Safety Report 6616644-2 (Version None)
Quarter: 2010Q1

REPORT INFORMATION
  Report Type: 
  Country: None (occurrence: None)
  Receive Date: 20100305
  Receipt Date: 20100223
  Transmission Date: 20100710
  Serious: Yes (Hospitalization)
  Sender: FDA-Public Use
  Company Number: US-ABBOTT-10P-163-0628237-00

PATIENT
  Sex: Male
  Weight: 88.076 kg

DRUGS (6)
  1. NIASPAN [Suspect]
     Indication: BLOOD CHOLESTEROL INCREASED
     Dosage: EVERY NIGHT
     Route: 048
     Dates: start: 20091201
  2. PRAVASTATIN [Concomitant]
     Indication: BLOOD CHOLESTEROL INCREASED
     Dosage: EVERY MORNING
     Dates: start: 20091221
  3. SPIRONOLACTONE [Concomitant]
     Indication: DRUG USE FOR UNKNOWN INDICATION
     Dates: start: 20091201
  4. NITROGLYCERIN [Concomitant]
     Indication: CHEST PAIN
     Dates: start: 20091201
  5. CARVEDILOL [Concomitant]
     Indication: DRUG USE FOR UNKNOWN INDICATION
     Dates: start: 20091221
  6. OMEPRAZOLE [Concomitant]
     Indication: DYSPEPSIA

REACTIONS (5)
  - BLOOD POTASSIUM DECREASED [None]
  - HAEMORRHAGE [None]
  - MYOCARDIAL INFARCTION [None]
  - PAIN [None]
  - PARAESTHESIA [None]
